FAERS Safety Report 25743225 (Version 1)
Quarter: 2025Q3

REPORT INFORMATION
  Report Type: Report from Study
  Country: US (occurrence: US)
  Receive Date: 20250830
  Receipt Date: 20250830
  Transmission Date: 20251020
  Serious: Yes (Death, Hospitalization, Other)
  Sender: CSL BEHRING
  Company Number: US-BEH-2024190262

PATIENT
  Age: 70 Year
  Sex: Female
  Weight: 53.515 kg

DRUGS (1)
  1. ZEMAIRA [Suspect]
     Active Substance: .ALPHA.1-PROTEINASE INHIBITOR HUMAN
     Indication: Alpha-1 antitrypsin deficiency
     Dosage: UNK, QW
     Route: 042

REACTIONS (9)
  - Death [Fatal]
  - Chronic obstructive pulmonary disease [Unknown]
  - Dehydration [Unknown]
  - Weight decreased [Unknown]
  - Hepatic cirrhosis [Unknown]
  - Dyspnoea [Unknown]
  - Productive cough [Unknown]
  - Cough [Unknown]
  - White blood cell count decreased [Unknown]
